FAERS Safety Report 15475518 (Version 1)
Quarter: 2018Q4

REPORT INFORMATION
  Report Type: Spontaneous
  Country: US (occurrence: US)
  Receive Date: 20181008
  Receipt Date: 20181008
  Transmission Date: 20190205
  Serious: Yes (Hospitalization)
  Sender: FDA-Public Use
  Company Number: US-DSJP-DSU-2017-143876

PATIENT

DRUGS (1)
  1. AZOR [Suspect]
     Active Substance: AMLODIPINE BESYLATE\OLMESARTAN MEDOXOMIL
     Indication: PRODUCT USED FOR UNKNOWN INDICATION
     Dosage: 5-40 MG, QD
     Route: 048
     Dates: start: 201302

REACTIONS (5)
  - Acute kidney injury [Recovered/Resolved]
  - Iron deficiency anaemia [Recovering/Resolving]
  - Haemorrhoids [Unknown]
  - Gastrointestinal haemorrhage [Recovering/Resolving]
  - Sprue-like enteropathy [Recovering/Resolving]

NARRATIVE: CASE EVENT DATE: 201403
